FAERS Safety Report 6432136-8 (Version None)
Quarter: 2009Q4

REPORT INFORMATION
  Report Type: 
  Country: None (occurrence: None)
  Receive Date: 20091109
  Receipt Date: 20091102
  Transmission Date: 20100525
  Serious: Yes (Hospitalization)
  Sender: FDA-Public Use
  Company Number: FR-BRISTOL-MYERS SQUIBB COMPANY-14841555

PATIENT
  Age: 50 Year
  Sex: Male

DRUGS (5)
  1. TAXOL [Suspect]
     Indication: METASTATIC MALIGNANT MELANOMA
     Dosage: ON DAY 1, DAY 8 AND DAY 15 TOTAL: 2080 MG/M2;INJ
     Route: 042
     Dates: start: 20081106, end: 20090716
  2. PRIMPERAN [Concomitant]
     Dosage: 1 DF = 1 VIAL;ON 04DEC08(D1C2),31DEC08(D1C3),29JAN09(D1C4),26FEB09(D1C5);04DEC08(2 CYC LS:16JUL09
     Route: 042
     Dates: start: 20081106
  3. ZOPHREN [Concomitant]
     Dosage: 1 DF=1 VIAL;ON 04DEC08(D1C2),31DEC08(D1C3),29JAN09(D1C4),26FEB09(D1C5);04-DEC-2008(2 CYC)
     Route: 042
     Dates: start: 20081106
  4. SOLUDECADRON [Concomitant]
     Dosage: ON 04DEC08(D1C2),31DEC08(D1C3),29JAN09(D1C4),26FEB09(D1C5);04-DEC-2008(2 CYC)
     Route: 042
     Dates: start: 20081106
  5. RANITIDINE [Concomitant]
     Dosage: ON 04DEC08(D1C2),31DEC08(D1C3),29JAN09(D1C4),26FEB09(D1C5);04-DEC-2008(2 CYC)
     Route: 042
     Dates: start: 20081106

REACTIONS (2)
  - GUILLAIN-BARRE SYNDROME [None]
  - PULMONARY EMBOLISM [None]
